FAERS Safety Report 9323916 (Version 1)
Quarter: 2013Q2

REPORT INFORMATION
  Report Type: Spontaneous
  Country: NL (occurrence: NL)
  Receive Date: 20130603
  Receipt Date: 20130603
  Transmission Date: 20140414
  Serious: Yes (Life-Threatening, Hospitalization)
  Sender: FDA-Public Use
  Company Number: NL-PFIZER INC-2013163650

PATIENT
  Age: 22 Year
  Sex: Female
  Weight: 76 kg

DRUGS (1)
  1. ETHINYLESTRADIOL/LEVONORGESTREL [Suspect]
     Indication: CONTRACEPTION
     Dosage: 1 DF, 1X/DAY
     Dates: start: 2009, end: 201212

REACTIONS (1)
  - Syncope [Recovered/Resolved]
